FAERS Safety Report 25652619 (Version 2)
Quarter: 2025Q3

REPORT INFORMATION
  Report Type: Spontaneous
  Country: JP (occurrence: JP)
  Receive Date: 20250807
  Receipt Date: 20250917
  Transmission Date: 20251020
  Serious: Yes (Hospitalization, Other)
  Sender: ACCORD
  Company Number: JP-MLMSERVICE-20240403-PI001301-00206-1

PATIENT
  Age: 69 Year
  Sex: Male
  Weight: 43 kg

DRUGS (13)
  1. QUETIAPINE [Suspect]
     Active Substance: QUETIAPINE
     Indication: Product used for unknown indication
     Dosage: 1 DF?BEFORE BEDTIME
  2. LITHIUM CARBONATE [Suspect]
     Active Substance: LITHIUM CARBONATE
     Indication: Product used for unknown indication
     Dosage: AFTER DINNER.
  3. NITRAZEPAM [Suspect]
     Active Substance: NITRAZEPAM
     Indication: Product used for unknown indication
     Dosage: STRENGTH 5 MG ?1 DFTWBEFORE BEDTIME
  4. BROTIZOLAM [Suspect]
     Active Substance: BROTIZOLAM
     Indication: Product used for unknown indication
     Dosage: STRENGTH: 25 MG ?2 DF?BEFORE BEDTIME
  5. ZOPICLONE [Suspect]
     Active Substance: ZOPICLONE
     Indication: Product used for unknown indication
     Dosage: STRENGTH: 7.5 MG, 1 DF, BEFORE BEDTIME
  6. OLANZAPINE [Suspect]
     Active Substance: OLANZAPINE
     Indication: Product used for unknown indication
  7. ESZOPICLONE [Suspect]
     Active Substance: ESZOPICLONE
     Indication: Insomnia
     Dosage: STRNGTH:1 MG, 1 DF, BEFORE BEDTIME
  8. LORAZEPAM [Suspect]
     Active Substance: LORAZEPAM
     Indication: Product used for unknown indication
  9. VALPROATE SODIUM [Concomitant]
     Active Substance: VALPROATE SODIUM
     Dosage: 4 DF??4 TABLETS AFTER BREAKFAST, LUNCH, AND DINNER ?EXTENDED-RELEASE
  10. LANSOPRAZOLE [Concomitant]
     Active Substance: LANSOPRAZOLE
     Dosage: 1 DF?AFTER BREAKFAST
  11. QUETIAPINE [Suspect]
     Active Substance: QUETIAPINE
     Indication: Product used for unknown indication
     Dosage: 2 DF?BEFORE BEDTIME
  12. ESZOPICLONE [Suspect]
     Active Substance: ESZOPICLONE
     Indication: Insomnia
     Dosage: 1 DF, AS NECESSARY
  13. LITHIUM CARBONATE [Suspect]
     Active Substance: LITHIUM CARBONATE
     Indication: Product used for unknown indication
     Dosage: 3 DF??AFTER BREAKFAST, LUNCH, AND DINNER.

REACTIONS (5)
  - Somnolence [Recovering/Resolving]
  - Dysphagia [Recovering/Resolving]
  - Bronchial obstruction [Recovering/Resolving]
  - Foreign body aspiration [Recovering/Resolving]
  - Pneumonia [Recovering/Resolving]
